FAERS Safety Report 9189825 (Version 1)
Quarter: 2013Q1

REPORT INFORMATION
  Report Type: Spontaneous
  Country: US (occurrence: US)
  Receive Date: 20130326
  Receipt Date: 20130326
  Transmission Date: 20140127
  Serious: Yes (Other)
  Sender: FDA-Public Use
  Company Number: US-PFIZER INC-2013096023

PATIENT
  Age: 50 Year
  Sex: Female
  Weight: 95.69 kg

DRUGS (5)
  1. CELEBREX [Suspect]
     Indication: OSTEOARTHRITIS
     Dosage: 200 MG, 2X/DAY
  2. SIMVASTATIN [Concomitant]
     Indication: BLOOD CHOLESTEROL ABNORMAL
     Dosage: 20 MG, 1X/DAY
  3. CALCIUM [Concomitant]
     Dosage: UNK, 1X/DAY
  4. VITAMIN A [Concomitant]
     Dosage: UNK, 1X/DAY
  5. VITAMIN C [Concomitant]
     Dosage: UNK, 1X/DAY

REACTIONS (1)
  - Rotator cuff syndrome [Recovered/Resolved]
